FAERS Safety Report 7278938-X (Version None)
Quarter: 2011Q1

REPORT INFORMATION
  Report Type: 
  Country: None (occurrence: None)
  Receive Date: 20110207
  Receipt Date: 20110124
  Transmission Date: 20110831
  Serious: Yes (Hospitalization)
  Sender: FDA-Public Use
  Company Number: US-TYCO HEALTHCARE/MALLINCKRODT-T201100087

PATIENT
  Age: 49 Year
  Sex: Male

DRUGS (2)
  1. AMPHETAMINE [Suspect]
     Indication: WEIGHT CONTROL
     Dosage: UNK
  2. METHADOSE [Suspect]
     Indication: PAIN
     Dosage: UNK

REACTIONS (1)
  - ABNORMAL BEHAVIOUR [None]
